FAERS Safety Report 20385127 (Version 1)
Quarter: 2022Q1

REPORT INFORMATION
  Report Type: Spontaneous
  Country: US (occurrence: US)
  Receive Date: 20220127
  Receipt Date: 20220127
  Transmission Date: 20220423
  Serious: No
  Sender: FDA-Public Use
  Company Number: US-PERRIGO-21US003006

PATIENT
  Age: 72 Year
  Sex: Female
  Weight: 87.07 kg

DRUGS (3)
  1. OMEPRAZOLE [Suspect]
     Active Substance: OMEPRAZOLE
     Indication: Flatulence
     Dosage: 20 MG, QD
     Route: 050
     Dates: start: 20210204, end: 20210217
  2. LISINOPRIL [Concomitant]
     Active Substance: LISINOPRIL
     Indication: Hypertension
     Dosage: UNK
     Route: 065
  3. ADVIL [Concomitant]
     Active Substance: IBUPROFEN

REACTIONS (2)
  - Arthralgia [Not Recovered/Not Resolved]
  - Off label use [Recovered/Resolved]

NARRATIVE: CASE EVENT DATE: 20210204
